FAERS Safety Report 5620921-1 (Version None)
Quarter: 2008Q1

REPORT INFORMATION
  Report Type: 
  Country: None (occurrence: None)
  Receive Date: 20080208
  Receipt Date: 20080128
  Transmission Date: 20080703
  Serious: Yes (Death)
  Sender: FDA-Public Use
  Company Number: US-PFIZER INC-2008008557

PATIENT
  Sex: Female

DRUGS (2)
  1. NORVASC [Suspect]
  2. DETROL LA [Suspect]

REACTIONS (1)
  - DEATH [None]
